FAERS Safety Report 9476720 (Version 2)
Quarter: 2013Q3

REPORT INFORMATION
  Report Type: Spontaneous
  Country: US (occurrence: US)
  Receive Date: 20130826
  Receipt Date: 20130826
  Transmission Date: 20140515
  Serious: No
  Sender: FDA-Public Use
  Company Number: US-BRISTOL-MYERS SQUIBB COMPANY-17087966

PATIENT
  Age: 40 Year
  Sex: Female
  Weight: 62.58 kg

DRUGS (3)
  1. KENALOG-40 INJ [Suspect]
     Indication: DERMATITIS CONTACT
     Dosage: 1 DF = 40MG/4ML;1.5ML?60MG/TOTAL
     Route: 030
     Dates: start: 20120628
  2. MULTIVITAMIN [Concomitant]
  3. CLOBETASOL [Concomitant]
     Indication: DERMATITIS

REACTIONS (4)
  - Injection site atrophy [Unknown]
  - Menstrual disorder [Unknown]
  - Hearing impaired [Unknown]
  - Arthralgia [Unknown]
